FAERS Safety Report 7692923-5 (Version None)
Quarter: 2011Q3

REPORT INFORMATION
  Report Type: 
  Country: None (occurrence: None)
  Receive Date: 20110819
  Receipt Date: 20110809
  Transmission Date: 20111222
  Serious: Yes (Other)
  Sender: FDA-Public Use
  Company Number: CA-JNJFOC-20110805854

PATIENT
  Sex: Female
  Weight: 85 kg

DRUGS (6)
  1. REMICADE [Suspect]
     Indication: RHEUMATOID ARTHRITIS
     Route: 042
     Dates: start: 20040601
  2. METHOTREXATE [Concomitant]
  3. NAPROSYN [Concomitant]
  4. SYNTHROID [Concomitant]
  5. PLAQUENIL [Concomitant]
  6. HYDROCHLOROTHIAZIDE [Concomitant]

REACTIONS (2)
  - VOMITING [None]
  - HERPES ZOSTER [None]
